FAERS Safety Report 25669760 (Version 1)
Quarter: 2025Q3

REPORT INFORMATION
  Report Type: Spontaneous
  Country: US (occurrence: US)
  Receive Date: 20250812
  Receipt Date: 20250812
  Transmission Date: 20251021
  Serious: Yes (Other)
  Sender: MYLAN
  Company Number: US-MYLANLABS-2025M1068113

PATIENT
  Age: 34 Year
  Sex: Male

DRUGS (5)
  1. DOXORUBICIN [Suspect]
     Active Substance: DOXORUBICIN
     Indication: Pleomorphic adenoma
  2. DOXORUBICIN [Suspect]
     Active Substance: DOXORUBICIN
  3. CISPLATIN [Suspect]
     Active Substance: CISPLATIN
     Indication: Pleomorphic adenoma
  4. VINCRISTINE [Suspect]
     Active Substance: VINCRISTINE
     Indication: Pleomorphic adenoma
  5. PACLITAXEL [Concomitant]
     Active Substance: PACLITAXEL
     Indication: Pleomorphic adenoma

REACTIONS (1)
  - Acute kidney injury [Unknown]
